FAERS Safety Report 8113785-8 (Version None)
Quarter: 2012Q1

REPORT INFORMATION
  Report Type: 
  Country: None (occurrence: None)
  Receive Date: 20120203
  Receipt Date: 20120131
  Transmission Date: 20120608
  Serious: Yes (Hospitalization)
  Sender: FDA-Public Use
  Company Number: FR-PFIZER INC-2012025466

PATIENT
  Age: 81 Year
  Sex: Female

DRUGS (5)
  1. ZYPREXA [Concomitant]
     Indication: ABNORMAL BEHAVIOUR
     Dosage: 10 MG, 2X/DAY
     Route: 048
     Dates: start: 20100101
  2. MYOLASTAN [Suspect]
     Indication: BACK PAIN
     Dosage: UNK
     Route: 048
     Dates: start: 20110718, end: 20110922
  3. TIAPRIDAL [Concomitant]
     Indication: AGITATION
     Dosage: 100 MG
     Route: 048
     Dates: start: 20110201
  4. LYRICA [Suspect]
     Indication: BACK PAIN
     Dosage: UNK
     Route: 048
     Dates: start: 20110722, end: 20110922
  5. XYZAL [Concomitant]
     Dosage: UNK
     Route: 048

REACTIONS (5)
  - SKIN EXFOLIATION [None]
  - SKIN ULCER [None]
  - DRUG ERUPTION [None]
  - MOUTH ULCERATION [None]
  - RASH MACULO-PAPULAR [None]
